FAERS Safety Report 23067936 (Version 2)
Quarter: 2023Q4

REPORT INFORMATION
  Report Type: Spontaneous
  Country: US (occurrence: US)
  Receive Date: 20231016
  Receipt Date: 20231109
  Transmission Date: 20240110
  Serious: No
  Sender: FDA-Public Use
  Company Number: US-HETERO-HET2023US02902

PATIENT
  Sex: Male

DRUGS (2)
  1. TADALAFIL [Suspect]
     Active Substance: TADALAFIL
     Indication: Erectile dysfunction
     Dosage: 1 DOSAGE FORM, Q.D.
     Route: 065
  2. TADALAFIL [Suspect]
     Active Substance: TADALAFIL
     Indication: Vasodilation procedure

REACTIONS (3)
  - Product availability issue [Unknown]
  - Product dose omission issue [Unknown]
  - Drug ineffective [Unknown]
